FAERS Safety Report 5251671-1 (Version None)
Quarter: 2007Q1

REPORT INFORMATION
  Report Type: 
  Country: None (occurrence: None)
  Receive Date: 20070228
  Receipt Date: 20061023
  Transmission Date: 20070707
  Serious: No
  Sender: FDA-Public Use
  Company Number: US-GLAXOSMITHKLINE-A0622759A

PATIENT
  Age: 55 Year
  Sex: Female

DRUGS (4)
  1. LAMICTAL [Suspect]
     Dosage: 75MG SEE DOSAGE TEXT
     Route: 048
     Dates: start: 20060707, end: 20061001
  2. LEXAPRO [Concomitant]
     Route: 048
  3. AMBIEN [Concomitant]
     Dosage: 10MG AS REQUIRED
     Route: 048
  4. ATENOLOL [Concomitant]
     Route: 048

REACTIONS (4)
  - CONTUSION [None]
  - GINGIVAL BLEEDING [None]
  - GINGIVAL PAIN [None]
  - IMPAIRED HEALING [None]
